FAERS Safety Report 4952594-5 (Version None)
Quarter: 2006Q1

REPORT INFORMATION
  Report Type: 
  Country: None (occurrence: None)
  Receive Date: 20060317
  Receipt Date: 20060303
  Transmission Date: 20060701
  Serious: Yes (Hospitalization)
  Sender: FDA-Public Use
  Company Number: US-2006-004588

PATIENT
  Age: 82 Year
  Sex: Male

DRUGS (13)
  1. CAMPATH [Suspect]
     Indication: CHRONIC LYMPHOCYTIC LEUKAEMIA
     Dosage: SEE IMAGE
     Route: 058
     Dates: start: 20060127, end: 20060127
  2. CAMPATH [Suspect]
     Indication: CHRONIC LYMPHOCYTIC LEUKAEMIA
     Dosage: SEE IMAGE
     Route: 058
     Dates: start: 20060206, end: 20060208
  3. CAMPATH [Suspect]
     Indication: CHRONIC LYMPHOCYTIC LEUKAEMIA
     Dosage: SEE IMAGE
     Route: 058
     Dates: start: 20060210, end: 20060213
  4. CAMPATH [Suspect]
     Indication: CHRONIC LYMPHOCYTIC LEUKAEMIA
     Dosage: SEE IMAGE
     Route: 058
     Dates: start: 20060215, end: 20060217
  5. CAMPATH [Suspect]
     Indication: CHRONIC LYMPHOCYTIC LEUKAEMIA
     Dosage: SEE IMAGE
     Route: 058
     Dates: start: 20060222, end: 20060303
  6. TYLENOL (CAPLET) [Concomitant]
  7. BENADRYL ^ACHE^ (AMMONIUM CHLORIDE, MENTHOL, DIPHENHYDRAMINE HYDROCHLO [Concomitant]
  8. DECADRON SRC [Concomitant]
  9. BACTRIM [Concomitant]
  10. ACYCLOVIR [Concomitant]
  11. DIFLUCAN [Concomitant]
  12. PROSCAR [Concomitant]
  13. VITAMINS [Concomitant]

REACTIONS (16)
  - AMNESIA [None]
  - BODY TEMPERATURE FLUCTUATION [None]
  - CARDIAC INFECTION [None]
  - CARDIAC TAMPONADE [None]
  - DEPRESSED LEVEL OF CONSCIOUSNESS [None]
  - DISORIENTATION [None]
  - DYSPNOEA [None]
  - ENURESIS [None]
  - FEELING ABNORMAL [None]
  - INCOHERENT [None]
  - INJECTION SITE ERYTHEMA [None]
  - INJECTION SITE SWELLING [None]
  - MUSCLE SPASMS [None]
  - OSTEOARTHRITIS [None]
  - PYREXIA [None]
  - URINARY INCONTINENCE [None]
